FAERS Safety Report 19064854 (Version 4)
Quarter: 2021Q4

REPORT INFORMATION
  Report Type: Other
  Country: RO (occurrence: None)
  Receive Date: 20210327
  Receipt Date: 20211220
  Transmission Date: 20220303
  Serious: Yes (Other)
  Sender: FDA-Public Use
  Company Number: RO-ROCHE-2795244

PATIENT
  Sex: Female
  Weight: 93 kg

DRUGS (1)
  1. TOCILIZUMAB [Suspect]
     Active Substance: TOCILIZUMAB
     Indication: Rheumatic disorder
     Dosage: VIAL
     Route: 058

REACTIONS (4)
  - Localised infection [Unknown]
  - Erysipelas [Unknown]
  - Pain in extremity [Unknown]
  - Gait inability [Unknown]
